FAERS Safety Report 22194556 (Version 1)
Quarter: 2023Q2

REPORT INFORMATION
  Report Type: Report from Study
  Country: US (occurrence: US)
  Receive Date: 20230411
  Receipt Date: 20230411
  Transmission Date: 20230722
  Serious: Yes (Hospitalization)
  Sender: FDA-Public Use
  Company Number: US-GBT-021544

PATIENT
  Age: 23 Year
  Sex: Male

DRUGS (11)
  1. OXBRYTA [Suspect]
     Active Substance: VOXELOTOR
     Indication: Sickle cell disease
     Dates: start: 20220408
  2. MS CONTIN [Concomitant]
     Active Substance: MORPHINE SULFATE
     Indication: Sickle cell disease
     Route: 048
     Dates: start: 20220531
  3. ASPERCREME NOS [Concomitant]
     Active Substance: MENTHOL\TROLAMINE SALICYLATE
     Indication: Sickle cell disease
     Dosage: 1 PATCH
     Route: 062
     Dates: start: 20220821
  4. VITAMIN D3 [Concomitant]
     Active Substance: CHOLECALCIFEROL
     Dosage: 2 TABLET
     Route: 048
     Dates: start: 20220708
  5. HYDREA [Concomitant]
     Active Substance: HYDROXYUREA
     Indication: Sickle cell disease
     Dosage: ALTERNATE 1500/2000
     Route: 048
     Dates: start: 20170719
  6. TYLENOL [Concomitant]
     Active Substance: ACETAMINOPHEN
     Indication: Sickle cell disease
     Route: 048
     Dates: start: 20211217
  7. ADAKVEO [Concomitant]
     Active Substance: CRIZANLIZUMAB-TMCA
     Indication: Sickle cell disease
     Route: 042
     Dates: start: 20211217
  8. ROXICODONE [Concomitant]
     Active Substance: OXYCODONE HYDROCHLORIDE
     Indication: Sickle cell disease
     Route: 048
     Dates: start: 20200923
  9. MOTRIN [Concomitant]
     Active Substance: IBUPROFEN
     Indication: Sickle cell disease
     Route: 048
     Dates: start: 20200402
  10. AMOXIL [Concomitant]
     Active Substance: AMOXICILLIN
     Indication: Prophylaxis
     Route: 048
     Dates: start: 20190322
  11. NEURONTIN [Concomitant]
     Active Substance: GABAPENTIN
     Indication: Sickle cell disease
     Route: 048
     Dates: start: 20220809

REACTIONS (1)
  - Sickle cell anaemia with crisis [Recovered/Resolved]

NARRATIVE: CASE EVENT DATE: 20230310
